FAERS Safety Report 13152916 (Version 1)
Quarter: 2017Q1

REPORT INFORMATION
  Report Type: Spontaneous
  Country: FR (occurrence: FR)
  Receive Date: 20170126
  Receipt Date: 20170126
  Transmission Date: 20170428
  Serious: Yes (Hospitalization, Other)
  Sender: FDA-Public Use
  Company Number: FR-ASTRAZENECA-2017SE07494

PATIENT
  Age: 82 Year
  Sex: Female

DRUGS (11)
  1. SECTRAL [Concomitant]
     Active Substance: ACEBUTOLOL HYDROCHLORIDE
  2. ELISOR [Concomitant]
     Active Substance: PRAVASTATIN SODIUM
  3. ONGLYZA [Suspect]
     Active Substance: SAXAGLIPTIN HYDROCHLORIDE
     Indication: TYPE 2 DIABETES MELLITUS
     Route: 048
  4. LASILIX [Concomitant]
     Active Substance: FUROSEMIDE
  5. NITRIDERM [Concomitant]
     Active Substance: NITROGLYCERIN
  6. NOVONORM [Suspect]
     Active Substance: REPAGLINIDE
     Indication: TYPE 2 DIABETES MELLITUS
     Route: 048
  7. LAMALINE [Concomitant]
     Active Substance: ACETAMINOPHEN\CAFFEINE\OPIUM
     Dosage: TWO TO SIX PILLS A DAY
  8. RAMIPRIL. [Suspect]
     Active Substance: RAMIPRIL
     Indication: HYPERTENSION
     Route: 048
  9. COUMADINE [Concomitant]
     Active Substance: WARFARIN SODIUM
  10. NORSET [Suspect]
     Active Substance: MIRTAZAPINE
     Indication: DEPRESSION
     Route: 048
  11. CORDARONE [Concomitant]
     Active Substance: AMIODARONE HYDROCHLORIDE
     Dosage: AT MORNING EVERY TWO DAYS

REACTIONS (7)
  - Dermatitis bullous [Recovered/Resolved]
  - Toxic skin eruption [Unknown]
  - Escherichia test positive [Unknown]
  - White blood cell count increased [Unknown]
  - Hyperthermia [Unknown]
  - Staphylococcal infection [Unknown]
  - Haematuria [Unknown]

NARRATIVE: CASE EVENT DATE: 2016
